FAERS Safety Report 4738399-9 (Version None)
Quarter: 2005Q3

REPORT INFORMATION
  Report Type: 
  Country: None (occurrence: None)
  Receive Date: 20050809
  Receipt Date: 20050704
  Transmission Date: 20060218
  Serious: Yes (Other)
  Sender: FDA-Public Use
  Company Number: JP-GLAXOSMITHKLINE-B0389112A

PATIENT
  Age: 27 Year
  Sex: Male

DRUGS (3)
  1. PAXIL [Suspect]
     Dosage: 80MG SINGLE DOSE
     Route: 048
  2. ACETAMINOPHEN [Suspect]
     Dosage: 18TAB SINGLE DOSE
     Route: 048
  3. LOXONIN [Suspect]
     Dosage: 600MG SINGLE DOSE
     Route: 048

REACTIONS (10)
  - ANXIETY [None]
  - CONVULSION [None]
  - DEPRESSION [None]
  - DISSOCIATIVE AMNESIA [None]
  - HYPERVENTILATION [None]
  - HYPOAESTHESIA [None]
  - INSOMNIA [None]
  - INTENTIONAL MISUSE [None]
  - ROAD TRAFFIC ACCIDENT [None]
  - SCHIZOPHRENIA [None]
